FAERS Safety Report 4352980-0 (Version None)
Quarter: 2004Q2

REPORT INFORMATION
  Report Type: 
  Country: None (occurrence: None)
  Receive Date: 20040430
  Receipt Date: 20040120
  Transmission Date: 20050107
  Serious: No
  Sender: FDA-Public Use
  Company Number: 204316

PATIENT
  Age: 35 Year
  Sex: Female
  Weight: 53.5 kg

DRUGS (18)
  1. XOLAIR [Suspect]
     Indication: LATEX ALLERGY
     Dosage: 300 MG, Q2W, SUBCUTANEOUS
     Route: 058
     Dates: start: 20030829
  2. PREDNISONE [Concomitant]
  3. ZYFLO [Concomitant]
  4. GUAIFENESIN (DEXTROMETHORPHAN HYDROBROMIDE, GUAIFENESIN) [Concomitant]
  5. COMBIVENT (ALBUTEROL, ALBUTEROL SULFATE, IPRATROPIUM BROMIDE) [Concomitant]
  6. PULMICORT [Concomitant]
  7. ADVAIR (SALMETEROL XINAFOATE, FLUTICASONE PROPIONATE) [Concomitant]
  8. ALLEGRA (SALMETEROL XINAFOATE, FLUTICASONE PROPIONATE) [Concomitant]
  9. XOPENEX [Concomitant]
  10. IPRATROPIUM-BROMID (IPRATROPIUM BROMIDE) [Concomitant]
  11. OXYGEN (OXYGEN) [Concomitant]
  12. HUMALOG (LISPRO INSULIN) [Concomitant]
  13. LANTUS [Concomitant]
  14. IBUPROFEN [Concomitant]
  15. ATIVAN [Concomitant]
  16. PREVACID [Concomitant]
  17. ASTELIN NASAL SPRAY (AZELASTINE HYDROCHLORIDE) [Concomitant]
  18. ATROVENT NASAL SPRAY (IPRATROPIUM BROMIDE) [Concomitant]

REACTIONS (2)
  - FLUSHING [None]
  - PRURITUS [None]
